FAERS Safety Report 10233477 (Version 26)
Quarter: 2022Q3

REPORT INFORMATION
  Report Type: Report from Study
  Country: CA (occurrence: CA)
  Receive Date: 20140612
  Receipt Date: 20220810
  Transmission Date: 20221027
  Serious: Yes (Death, Hospitalization, Other)
  Sender: FDA-Public Use
  Company Number: PHHY2009CA34061

PATIENT
  Age: 81 Year
  Sex: Male

DRUGS (10)
  1. SANDOSTATIN LAR DEPOT [Suspect]
     Active Substance: OCTREOTIDE ACETATE
     Indication: Small intestine carcinoma
     Dosage: 60 MG, Q3W (EVERY 3 WEEKS)
     Route: 030
     Dates: start: 20090812, end: 20091007
  2. SANDOSTATIN LAR DEPOT [Suspect]
     Active Substance: OCTREOTIDE ACETATE
     Dosage: 60 MG, Q4W (EVERY 4 WEEKS)
     Route: 030
     Dates: start: 20090812
  3. SANDOSTATIN LAR DEPOT [Suspect]
     Active Substance: OCTREOTIDE ACETATE
     Dosage: 30 MG, EVERY 3 WEEKS
     Route: 030
     Dates: start: 20091105, end: 20091126
  4. SANDOSTATIN LAR DEPOT [Suspect]
     Active Substance: OCTREOTIDE ACETATE
     Dosage: 40 MG, EVERY 3 WEEKS
     Route: 030
     Dates: start: 20091222, end: 20100312
  5. SANDOSTATIN LAR DEPOT [Suspect]
     Active Substance: OCTREOTIDE ACETATE
     Dosage: 60 MG, Q3W (EVERY 3 WEEKS)
     Route: 030
     Dates: start: 20100401
  6. SANDOSTATIN [Suspect]
     Active Substance: OCTREOTIDE ACETATE
     Indication: Small intestine carcinoma
     Dosage: UNK UNK, ONCE/SINGLE
     Route: 058
     Dates: start: 20090729
  7. SANDOSTATIN [Suspect]
     Active Substance: OCTREOTIDE ACETATE
  8. SANDOSTATIN [Suspect]
     Active Substance: OCTREOTIDE ACETATE
  9. PRADAXA [Concomitant]
     Active Substance: DABIGATRAN ETEXILATE MESYLATE
     Indication: Product used for unknown indication
     Dosage: UNK
     Route: 065
  10. COUMADIN [Concomitant]
     Active Substance: WARFARIN SODIUM
     Indication: Product used for unknown indication
     Dosage: UNK UNK, QD
     Route: 065

REACTIONS (25)
  - Death [Fatal]
  - Cerebrovascular accident [Unknown]
  - Hemiparesis [Recovering/Resolving]
  - Facial paralysis [Unknown]
  - Speech disorder [Recovering/Resolving]
  - Dysarthria [Unknown]
  - Gastrointestinal disorder [Recovering/Resolving]
  - Intestinal obstruction [Unknown]
  - Post procedural haemorrhage [Unknown]
  - Blood pressure decreased [Unknown]
  - Abdominal pain [Unknown]
  - Tooth abscess [Unknown]
  - Metastases to liver [Unknown]
  - Blood pressure systolic increased [Unknown]
  - Renal mass [Unknown]
  - Lung opacity [Unknown]
  - Scar [Unknown]
  - Back pain [Unknown]
  - Heart rate irregular [Unknown]
  - Oedema peripheral [Not Recovered/Not Resolved]
  - Pain in extremity [Unknown]
  - Insomnia [Unknown]
  - Fatigue [Recovering/Resolving]
  - Dizziness [Unknown]
  - Inappropriate schedule of product administration [Unknown]

NARRATIVE: CASE EVENT DATE: 20140422
